FAERS Safety Report 19938153 (Version 1)
Quarter: 2021Q4

REPORT INFORMATION
  Report Type: Spontaneous
  Country: CA (occurrence: CA)
  Receive Date: 20211011
  Receipt Date: 20211011
  Transmission Date: 20220303
  Serious: Yes (Other)
  Sender: FDA-Public Use
  Company Number: CA-HELSINN-2021CA023072

PATIENT
  Age: 37 Year
  Sex: Female
  Weight: 46 kg

DRUGS (1)
  1. AKYNZEO [Suspect]
     Active Substance: NETUPITANT\PALONOSETRON HYDROCHLORIDE
     Indication: Prophylaxis of nausea and vomiting
     Dosage: 0.5 DOSAGE FORM, SINGLE
     Route: 048

REACTIONS (2)
  - Bradycardia [Recovered/Resolved]
  - Vomiting [Recovered/Resolved]
